FAERS Safety Report 20967574 (Version 1)
Quarter: 2022Q2

REPORT INFORMATION
  Report Type: Report from Study
  Country: GB (occurrence: None)
  Receive Date: 20220616
  Receipt Date: 20220616
  Transmission Date: 20220721
  Serious: Yes (Other)
  Sender: FDA-Public Use
  Company Number: GB-Merck Healthcare KGaA-9329276

PATIENT
  Sex: Female

DRUGS (4)
  1. MAVENCLAD [Suspect]
     Active Substance: CLADRIBINE
     Indication: Multiple sclerosis
     Dosage: YEAR ONE WEEK ONE THERAPY. TWO TABLETS ON DAY ONE AND ONE TABLET ON DAYS TWO TO FIVE.
     Route: 048
     Dates: start: 20200907
  2. MAVENCLAD [Suspect]
     Active Substance: CLADRIBINE
     Dosage: YEAR ONE WEEK TWO THERAPY.
     Route: 048
  3. MAVENCLAD [Suspect]
     Active Substance: CLADRIBINE
     Dosage: YEAR TWO WEEK ONE THERAPY. TWO TABLETS ON DAY ONE AND ONE TABLET ON DAYS TWO TO FIVE.
     Route: 048
     Dates: start: 20211206
  4. MAVENCLAD [Suspect]
     Active Substance: CLADRIBINE
     Dosage: YEAR TWO WEEK TWO THERAPY. TWO TABLETS ON DAY ONE AND ONE TABLET ON DAYS TWO TO FIVE.
     Route: 048

REACTIONS (4)
  - Syncope [Unknown]
  - Lymphocyte count decreased [Unknown]
  - Fatigue [Unknown]
  - Arthralgia [Unknown]
